FAERS Safety Report 4774871-3 (Version None)
Quarter: 2005Q3

REPORT INFORMATION
  Report Type: 
  Country: None (occurrence: None)
  Receive Date: 20050919
  Receipt Date: 20050907
  Transmission Date: 20060218
  Serious: Yes (Hospitalization, Disabling, Other)
  Sender: FDA-Public Use
  Company Number: 2005125442

PATIENT
  Age: 54 Year
  Sex: Female

DRUGS (15)
  1. NEURONTIN [Suspect]
     Indication: NEUROPATHIC PAIN
     Dosage: 1800 (600 MG, 3 IN 1 D)
     Dates: start: 20030101
  2. LISINOPRIL [Suspect]
     Indication: ILL-DEFINED DISORDER
  3. FLUOXETINE [Concomitant]
  4. WARFARIN SODIUM [Concomitant]
  5. ZETIA [Concomitant]
  6. TRICOR [Concomitant]
  7. AMIODARONE HCL [Concomitant]
  8. PRAVACHOL [Concomitant]
  9. NEXIUM [Concomitant]
  10. LASIX [Concomitant]
  11. ATENOLOL [Concomitant]
  12. ASPIRIN [Concomitant]
  13. VITAMINS [Concomitant]
  14. HYDROCODONE [Concomitant]
  15. DURAGESIC-100 [Concomitant]

REACTIONS (12)
  - ABASIA [None]
  - AMNESIA [None]
  - CELLULITIS [None]
  - DEREALISATION [None]
  - DIZZINESS [None]
  - FEELING DRUNK [None]
  - IMPAIRED WORK ABILITY [None]
  - NEUROPATHIC PAIN [None]
  - RENAL FAILURE [None]
  - SWELLING [None]
  - THINKING ABNORMAL [None]
  - WEIGHT INCREASED [None]
